FAERS Safety Report 19803232 (Version 1)
Quarter: 2021Q3

REPORT INFORMATION
  Report Type: Spontaneous
  Country: US (occurrence: US)
  Receive Date: 20210908
  Receipt Date: 20210908
  Transmission Date: 20211014
  Serious: Yes (Other)
  Sender: FDA-Public Use
  Company Number: US-GLAXOSMITHKLINE-US2021GSK191178

PATIENT
  Sex: Female

DRUGS (4)
  1. RANITIDINE CAPSULE [Suspect]
     Active Substance: RANITIDINE
     Indication: ARTHRITIS
     Dosage: 75 MG, QD
     Dates: start: 201210, end: 201908
  2. RANITIDINE HYDROCHLORIDE. [Suspect]
     Active Substance: RANITIDINE HYDROCHLORIDE
     Indication: ARTHRITIS
     Dosage: 300 MG, QD
     Dates: start: 201510, end: 201908
  3. RANITIDINE HYDROCHLORIDE. [Suspect]
     Active Substance: RANITIDINE HYDROCHLORIDE
     Indication: ARTHRITIS
     Dosage: 300 MG, QD
     Dates: start: 201510, end: 201908
  4. ZANTAC [Suspect]
     Active Substance: RANITIDINE HYDROCHLORIDE
     Indication: ARTHRITIS
     Dosage: 75 MG, QD
     Dates: start: 201210, end: 201908

REACTIONS (1)
  - Adenoid cystic carcinoma [Unknown]
